FAERS Safety Report 11071180 (Version 1)
Quarter: 2015Q2

REPORT INFORMATION
  Report Type: Spontaneous
  Country: HU (occurrence: HU)
  Receive Date: 20150428
  Receipt Date: 20150428
  Transmission Date: 20150821
  Serious: Yes (Hospitalization, Other)
  Sender: FDA-Public Use
  Company Number: HU-PFIZER INC-2015091397

PATIENT
  Age: 73 Year
  Sex: Female

DRUGS (7)
  1. BETALOC ZOK [Concomitant]
     Active Substance: METOPROLOL SUCCINATE
  2. L-THYROXIN [Concomitant]
     Active Substance: LEVOTHYROXINE SODIUM
  3. SOMATULINE LP [Concomitant]
     Active Substance: LANREOTIDE ACETATE
  4. SUTENT [Suspect]
     Active Substance: SUNITINIB MALATE
     Indication: PANCREATIC NEUROENDOCRINE TUMOUR
     Dosage: 37.5 MG, 1X/DAY
     Route: 048
     Dates: start: 20150125, end: 20150215
  5. XANAX [Concomitant]
     Active Substance: ALPRAZOLAM
  6. SUTENT [Suspect]
     Active Substance: SUNITINIB MALATE
     Dosage: 25 MG, 1X/DAY
     Route: 048
     Dates: start: 20150309
  7. PERINDOPRIL [Concomitant]
     Active Substance: PERINDOPRIL

REACTIONS (14)
  - Erythema [Unknown]
  - Pancreatic neuroendocrine tumour [Unknown]
  - Asthenia [Recovered/Resolved]
  - Bradyarrhythmia [Recovered/Resolved]
  - Asthenia [Recovered/Resolved]
  - Dry skin [Unknown]
  - Arteriosclerosis [Unknown]
  - Neutropenia [Recovered/Resolved]
  - Disease progression [Unknown]
  - Skin disorder [Unknown]
  - Oral disorder [Unknown]
  - Electrocardiogram QRS complex prolonged [Unknown]
  - Diverticulum intestinal [Unknown]
  - Thrombocytopenia [Recovered/Resolved]

NARRATIVE: CASE EVENT DATE: 201502
